FAERS Safety Report 23847069 (Version 1)
Quarter: 2024Q2

REPORT INFORMATION
  Report Type: Spontaneous
  Country: NL (occurrence: US)
  Receive Date: 20240513
  Receipt Date: 20240513
  Transmission Date: 20240716
  Serious: Yes (Hospitalization)
  Sender: FDA-Public Use
  Company Number: NL-HORIZON THERAPEUTICS-HZN-2024-005306

PATIENT

DRUGS (1)
  1. TEPEZZA [Suspect]
     Active Substance: TEPROTUMUMAB-TRBW
     Indication: Endocrine ophthalmopathy
     Dosage: FIRST INFUSION
     Route: 042

REACTIONS (6)
  - Hyperlipasaemia [Recovered/Resolved]
  - Confusional state [Recovered/Resolved]
  - Abdominal tenderness [Recovered/Resolved]
  - Abdominal rigidity [Unknown]
  - Fatigue [Recovered/Resolved]
  - Diarrhoea [Unknown]
